FAERS Safety Report 12335270 (Version 1)
Quarter: 2016Q2

REPORT INFORMATION
  Report Type: Spontaneous
  Country: US (occurrence: US)
  Receive Date: 20160504
  Receipt Date: 20160504
  Transmission Date: 20160815
  Serious: Yes (Hospitalization)
  Sender: FDA-Public Use
  Company Number: US-BAUSCH-BL-2016-010136

PATIENT
  Age: 20 Year
  Sex: Male

DRUGS (1)
  1. BUPROPION. [Suspect]
     Active Substance: BUPROPION
     Indication: SUICIDE ATTEMPT
     Dosage: 27 PILLS CONTAINING EACH 300 MG
     Route: 048

REACTIONS (6)
  - Intentional overdose [Unknown]
  - Generalised tonic-clonic seizure [Recovered/Resolved]
  - Suicide attempt [Unknown]
  - Hallucination, visual [Recovered/Resolved]
  - Hallucination, tactile [Recovered/Resolved]
  - Coma [Recovered/Resolved]
